FAERS Safety Report 19141131 (Version 7)
Quarter: 2022Q1

REPORT INFORMATION
  Report Type: Spontaneous
  Country: IN (occurrence: IN)
  Receive Date: 20210415
  Receipt Date: 20220222
  Transmission Date: 20220423
  Serious: Yes (Other)
  Sender: FDA-Public Use
  Company Number: IN-PFIZER INC-2021403508

PATIENT
  Age: 68 Year
  Sex: Female

DRUGS (9)
  1. PALBOCICLIB [Suspect]
     Active Substance: PALBOCICLIB
     Indication: Breast cancer metastatic
     Dosage: 125 MG, CYCLIC (ONCE DAILY FOR 21 D- 1 WK GAP)
     Route: 048
     Dates: start: 20200808
  2. PALBOCICLIB [Suspect]
     Active Substance: PALBOCICLIB
     Dosage: 125 MG, CYCLIC (DAILY, 21 DAYS ON X 7 DAYS OFF)
     Route: 048
     Dates: start: 20210703
  3. LETROZOLE [Concomitant]
     Active Substance: LETROZOLE
     Dosage: 2.5 MG, 1X/DAY X 28D
  4. ZOLDONAT [Concomitant]
     Dosage: 4 MG, MONTHLY (IN 100ML NS OVER 20MIN)
  5. SHELCAL [CALCIUM CARBONATE;COLECALCIFEROL] [Concomitant]
     Dosage: 1000 MG
  6. SHELCAL [CALCIUM CARBONATE;COLECALCIFEROL] [Concomitant]
     Dosage: 500 MG, 1X/DAY FOR 3 MONTHS
  7. DENOSUMAB [Concomitant]
     Active Substance: DENOSUMAB
     Dosage: 120MG, 4 WEEKLY X 3 MONTH
     Route: 058
  8. ANASTROZOLE [Concomitant]
     Active Substance: ANASTROZOLE
     Dosage: 1 MG, 1X/DAY
  9. RESTYL [Concomitant]
     Dosage: 0.5 MG, 1HS X 3 MONTHS

REACTIONS (6)
  - Diabetes mellitus [Unknown]
  - Blood pressure abnormal [Unknown]
  - SARS-CoV-2 test positive [Unknown]
  - Pruritus [Unknown]
  - Cardiac disorder [Unknown]
  - Heart rate decreased [Unknown]
